FAERS Safety Report 4542643-0 (Version None)
Quarter: 2004Q4

REPORT INFORMATION
  Report Type: 
  Country: None (occurrence: None)
  Receive Date: 20041230
  Receipt Date: 20030625
  Transmission Date: 20050328
  Serious: Yes (Life-Threatening, Hospitalization, Other)
  Sender: FDA-Public Use
  Company Number: FR-MERCK-0306FRA00089

PATIENT
  Age: 50 Year
  Sex: Male
  Weight: 70 kg

DRUGS (2)
  1. VIOXX [Suspect]
     Indication: ARTHRALGIA
     Route: 048
     Dates: start: 20030318, end: 20030329
  2. [THERAPY UNSPECIFIED] [Concomitant]
     Route: 065
     Dates: start: 20030318, end: 20030329

REACTIONS (13)
  - ACUTE RESPIRATORY FAILURE [None]
  - ASCITES [None]
  - CEREBRAL ARTERIOVENOUS MALFORMATION HAEMORRHAGIC [None]
  - CHOLECYSTITIS INFECTIVE [None]
  - GASTRIC CYST [None]
  - HYPOCALCAEMIA [None]
  - PANCREATIC PSEUDOCYST [None]
  - PANCREATITIS ACUTE [None]
  - PANCREATITIS NECROTISING [None]
  - PLEURAL EFFUSION [None]
  - POST PROCEDURAL COMPLICATION [None]
  - SUBILEUS [None]
  - TRANSIENT ISCHAEMIC ATTACK [None]
